FAERS Safety Report 8759783 (Version 3)
Quarter: 2012Q4

REPORT INFORMATION
  Report Type: 
  Country: DE (occurrence: JP)
  Receive Date: 20120829
  Receipt Date: 20120914
  Transmission Date: 20130627
  Serious: Yes (Life-Threatening, Hospitalization)
  Sender: FDA-Public Use
  Company Number: JP-FRI-1000038173

PATIENT
  Age: 92 None
  Sex: Male

DRUGS (12)
  1. MEMANTINE [Suspect]
     Indication: DEMENTIA ALZHEIMER^S TYPE
     Dosage: 5 mg
     Route: 048
     Dates: start: 20120702, end: 20120708
  2. MEMANTINE [Suspect]
     Dosage: 10 mg
     Route: 048
     Dates: start: 20120709, end: 20120715
  3. MEMANTINE [Suspect]
     Dosage: 15 mg
     Route: 048
     Dates: start: 20120716, end: 20120722
  4. MEMANTINE [Suspect]
     Indication: DEMENTIA ALZHEIMER^S TYPE
     Dosage: 20 mg
     Route: 048
     Dates: start: 20120723, end: 20120810
  5. HOKUNALIN [Concomitant]
     Indication: CHRONIC OBSTRUCTIVE PULMONARY DISEASE
     Dosage: 1 g
     Route: 062
     Dates: end: 20120810
  6. THEODUR [Concomitant]
     Indication: CHRONIC OBSTRUCTIVE PULMONARY DISEASE
     Dosage: 200 mg
     Route: 048
     Dates: end: 20120810
  7. MUCODYNE [Concomitant]
     Indication: CHRONIC OBSTRUCTIVE PULMONARY DISEASE
     Dosage: 1500 mg
     Route: 048
     Dates: end: 20120810
  8. FERROMIA [Concomitant]
     Indication: ANAEMIA
     Dosage: 100 mg
     Route: 048
     Dates: end: 20120810
  9. SPIRIVA [Concomitant]
     Indication: CHRONIC OBSTRUCTIVE PULMONARY DISEASE
     Dosage: 5 mcg
     Dates: end: 20120810
  10. ARICEPT [Concomitant]
     Indication: DEMENTIA ALZHEIMER^S TYPE
     Dosage: 5 mg
     Route: 048
     Dates: end: 20120810
  11. LASIX [Concomitant]
     Indication: CARDIAC FAILURE CHRONIC
     Dosage: 20 mg
     Route: 048
     Dates: end: 20120810
  12. RIKKUNSHITO [Concomitant]
     Indication: DECREASED APPETITE
     Dosage: 7.5 g
     Route: 048
     Dates: start: 20120808, end: 20120810

REACTIONS (4)
  - Altered state of consciousness [Recovering/Resolving]
  - Convulsion [Recovering/Resolving]
  - Decreased appetite [Unknown]
  - Renal impairment [Unknown]
